FAERS Safety Report 4583988-8 (Version None)
Quarter: 2005Q1

REPORT INFORMATION
  Report Type: 
  Country: None (occurrence: None)
  Receive Date: 20050125
  Receipt Date: 20041201
  Transmission Date: 20050727
  Serious: No
  Sender: FDA-Public Use
  Company Number: USA041183219

PATIENT
  Age: 61 Year
  Sex: Female

DRUGS (5)
  1. FORTEO [Suspect]
     Indication: BONE DISORDER
     Dates: start: 20041003, end: 20041018
  2. FORTEO [Suspect]
     Indication: CALCIUM DEFICIENCY
     Dates: start: 20041003, end: 20041018
  3. ATROVENT [Concomitant]
  4. ALBUTEROL [Concomitant]
  5. OXYGEN [Concomitant]

REACTIONS (5)
  - ARTHRALGIA [None]
  - BACK PAIN [None]
  - CONSTIPATION [None]
  - DYSPNOEA [None]
  - HEART RATE INCREASED [None]
